FAERS Safety Report 16640126 (Version 2)
Quarter: 2019Q3

REPORT INFORMATION
  Report Type: Spontaneous
  Country: DE (occurrence: DE)
  Receive Date: 20190727
  Receipt Date: 20190805
  Transmission Date: 20191004
  Serious: Yes (Death)
  Sender: FDA-Public Use
  Company Number: PHHY2019DE174794

PATIENT
  Sex: Male

DRUGS (4)
  1. AMPHO-MORONAL [Concomitant]
     Active Substance: AMPHOTERICIN B
     Indication: PROPHYLACTIC CHEMOTHERAPY
     Dosage: 1 ML, QID
     Route: 048
     Dates: start: 20190514
  2. MEKINIST [Suspect]
     Active Substance: TRAMETINIB DIMETHYL SULFOXIDE
     Indication: METASTATIC MALIGNANT MELANOMA
     Dosage: UNK
     Route: 048
     Dates: start: 20190514
  3. TAFINLAR [Suspect]
     Active Substance: DABRAFENIB MESYLATE
     Indication: METASTATIC MALIGNANT MELANOMA
     Dosage: UNK
     Route: 048
     Dates: start: 20190514
  4. COTRIM [Concomitant]
     Active Substance: SULFAMETHOXAZOLE\TRIMETHOPRIM
     Indication: PROPHYLACTIC CHEMOTHERAPY
     Dosage: UNK
     Route: 048
     Dates: start: 20190514

REACTIONS (2)
  - Product use issue [Unknown]
  - Neoplasm malignant [Fatal]

NARRATIVE: CASE EVENT DATE: 20190514
